FAERS Safety Report 4992828-4 (Version None)
Quarter: 2006Q1

REPORT INFORMATION
  Report Type: 
  Country: None (occurrence: None)
  Receive Date: 20060315
  Receipt Date: 20051117
  Transmission Date: 20060701
  Serious: No
  Sender: FDA-Public Use
  Company Number: 2005RL000178

PATIENT
  Sex: Male

DRUGS (3)
  1. OMACOR [Suspect]
     Indication: BLOOD TRIGLYCERIDES INCREASED
     Dosage: 1 GM;QD;PO
     Route: 048
     Dates: start: 20051108
  2. ACETYLSALICYLIC ACID SRT [Concomitant]
  3. MULTIVITAMIN [Concomitant]

REACTIONS (2)
  - CONSTIPATION [None]
  - HEADACHE [None]
